FAERS Safety Report 25173889 (Version 1)
Quarter: 2025Q2

REPORT INFORMATION
  Report Type: Spontaneous
  Country: US (occurrence: None)
  Receive Date: 20250405
  Receipt Date: 20250405
  Transmission Date: 20250716
  Serious: No
  Sender: FDA-CTU
  Company Number: None

PATIENT
  Age: 68 Year
  Sex: Female

DRUGS (1)
  1. METOPROLOL SUCCINATE [Suspect]
     Active Substance: METOPROLOL SUCCINATE
     Indication: Hypertension
     Dosage: FREQUENCY : DAILY;?
     Route: 002
     Dates: start: 20250317, end: 20250405

REACTIONS (3)
  - Urticaria [None]
  - Blister [None]
  - Skin ulcer [None]

NARRATIVE: CASE EVENT DATE: 20250404
